FAERS Safety Report 16094042 (Version 1)
Quarter: 2019Q2

REPORT INFORMATION
  Report Type: Spontaneous
  Country: US (occurrence: US)
  Receive Date: 20190319
  Receipt Date: 20190319
  Transmission Date: 20190711
  Serious: No
  Sender: FDA-Public Use
  Company Number: None

PATIENT
  Age: 58 Year
  Sex: Female
  Weight: 133.2 kg

DRUGS (17)
  1. ESCITALOPRAM [Concomitant]
     Active Substance: ESCITALOPRAM OXALATE
  2. FAMOTIDINE. [Concomitant]
     Active Substance: FAMOTIDINE
  3. LOSARTAN. [Concomitant]
     Active Substance: LOSARTAN
  4. IRON [Concomitant]
     Active Substance: IRON
  5. OMEPRAZOLE. [Concomitant]
     Active Substance: OMEPRAZOLE
  6. GINKO BILOBA [Concomitant]
     Active Substance: GINKGO
  7. QUETIAPINE. [Concomitant]
     Active Substance: QUETIAPINE
  8. ALEVE [Concomitant]
     Active Substance: NAPROXEN SODIUM
  9. POTASSIUM GLUCONATE [Concomitant]
     Active Substance: POTASSIUM GLUCONATE
  10. LYRICA [Suspect]
     Active Substance: PREGABALIN
     Indication: FIBROMYALGIA
     Dosage: ?          QUANTITY:1 TABLET(S);?
     Route: 048
     Dates: start: 20181129, end: 20181207
  11. OXYCODONE [Concomitant]
     Active Substance: OXYCODONE
  12. SUPER B COMPLEX [Concomitant]
     Active Substance: CYANOCOBALAMIN\DEXPANTHENOL\NIACINAMIDE\PYRIDOXINE HYDROCHLORIDE\RIBOFLAVIN 5^-PHOSPHATE SODIUM\THIAMINE HYDROCHLORIDE\VITAMIN B COMPLEX
  13. Z QUILL [Concomitant]
  14. MELATONIN [Concomitant]
     Active Substance: MELATONIN
  15. LEVOTHYROXINE. [Concomitant]
     Active Substance: LEVOTHYROXINE
  16. ECHINACEA [Concomitant]
     Active Substance: ECHINACEA, UNSPECIFIED
  17. FISH OIL [Concomitant]
     Active Substance: FISH OIL

REACTIONS (12)
  - Dysarthria [None]
  - Emotional distress [None]
  - Peripheral coldness [None]
  - Feeling abnormal [None]
  - Hyperhidrosis [None]
  - Euphoric mood [None]
  - Dyskinesia [None]
  - Fall [None]
  - Disturbance in attention [None]
  - Increased appetite [None]
  - Fatigue [None]
  - Dry mouth [None]

NARRATIVE: CASE EVENT DATE: 20181129
